FAERS Safety Report 19656075 (Version 1)
Quarter: 2021Q3

REPORT INFORMATION
  Report Type: Spontaneous
  Country: AU (occurrence: AU)
  Receive Date: 20210804
  Receipt Date: 20210804
  Transmission Date: 20211014
  Serious: Yes (Disabling, Other)
  Sender: FDA-Public Use
  Company Number: AU-SA-2021SA255916

PATIENT
  Age: 50 Year
  Sex: Female

DRUGS (2)
  1. DUPIXENT [Suspect]
     Active Substance: DUPILUMAB
     Indication: ECZEMA
     Dosage: UNK
     Route: 058
     Dates: start: 20201211, end: 20210420
  2. FLUCONAZOLE. [Concomitant]
     Active Substance: FLUCONAZOLE
     Indication: ANTIFUNGAL TREATMENT
     Dosage: 150 MG
     Route: 048
     Dates: start: 20210331, end: 20210331

REACTIONS (6)
  - Sleep disorder [Recovering/Resolving]
  - Alopecia [Recovering/Resolving]
  - Eczema [Recovering/Resolving]
  - Loss of personal independence in daily activities [Recovering/Resolving]
  - Grip strength decreased [Recovering/Resolving]
  - Arthralgia [Recovering/Resolving]

NARRATIVE: CASE EVENT DATE: 20210524
